FAERS Safety Report 14276893 (Version 4)
Quarter: 2019Q1

REPORT INFORMATION
  Report Type: Spontaneous
  Country: US (occurrence: US)
  Receive Date: 20171211
  Receipt Date: 20190326
  Transmission Date: 20190417
  Serious: Yes (Hospitalization, Other)
  Sender: FDA-Public Use
  Company Number: US-OTSUKA-2017_007461

PATIENT
  Age: 33 Year
  Sex: Male
  Weight: 76.64 kg

DRUGS (11)
  1. LITHIUM. [Concomitant]
     Active Substance: LITHIUM
     Indication: PRODUCT USED FOR UNKNOWN INDICATION
     Dosage: UNK
     Route: 065
  2. LAMICTAL [Concomitant]
     Active Substance: LAMOTRIGINE
     Indication: PRODUCT USED FOR UNKNOWN INDICATION
     Dosage: 25 MG, QD
     Route: 048
  3. DESYREL [Concomitant]
     Active Substance: TRAZODONE HYDROCHLORIDE
     Indication: PRODUCT USED FOR UNKNOWN INDICATION
     Dosage: 50 MG, QHS AS NEEDED FOR SLEEP
     Route: 048
  4. ABILIFY [Suspect]
     Active Substance: ARIPIPRAZOLE
     Indication: BIPOLAR DISORDER
     Dosage: ARIPIPRAZOLE THERAPY AT A DOSE OF 10 MG ONCE DAILY ON 31-DEC, 5 MG AND 15 MG ORALLY ON 02-JAN (UNKNO
     Route: 065
  5. LATUDA [Concomitant]
     Active Substance: LURASIDONE HYDROCHLORIDE
     Indication: PRODUCT USED FOR UNKNOWN INDICATION
     Dosage: 1 DF, QD
     Route: 048
  6. DEPAKOTE [Concomitant]
     Active Substance: DIVALPROEX SODIUM
     Indication: BIPOLAR DISORDER
     Dosage: 2000 MG, QHS
     Route: 048
  7. ZESTRIL [Concomitant]
     Active Substance: LISINOPRIL
     Indication: BLOOD PRESSURE MEASUREMENT
     Dosage: 10 MG, QD
     Route: 065
  8. OLANZAPINE. [Concomitant]
     Active Substance: OLANZAPINE
     Indication: PRODUCT USED FOR UNKNOWN INDICATION
     Dosage: UNK
     Route: 065
  9. ZOLOFT [Concomitant]
     Active Substance: SERTRALINE HYDROCHLORIDE
     Indication: PRODUCT USED FOR UNKNOWN INDICATION
     Dosage: UNK
     Route: 065
  10. RISPERIDONE. [Concomitant]
     Active Substance: RISPERIDONE
     Indication: PRODUCT USED FOR UNKNOWN INDICATION
     Dosage: UNK
     Route: 065
  11. ABILIFY [Suspect]
     Active Substance: ARIPIPRAZOLE
     Indication: BIPOLAR I DISORDER
     Dosage: 2 MG, DAILY (ARIPIPRAZOLE THERAPY AT A DOSE OF 10 MG ONCE DAILY ON 31-DEC 5 MG AND 15 MG ORALLY ON
     Route: 048
     Dates: start: 20080101, end: 201404

REACTIONS (32)
  - Hand fracture [Unknown]
  - Adverse event [Unknown]
  - Loss of employment [Unknown]
  - Tremor [Unknown]
  - Economic problem [Unknown]
  - Alcoholism [Unknown]
  - Drug dependence [Not Recovered/Not Resolved]
  - Mental disorder [Unknown]
  - Suicide attempt [Not Recovered/Not Resolved]
  - Gambling disorder [Not Recovered/Not Resolved]
  - Shoplifting [Not Recovered/Not Resolved]
  - Sexual dysfunction [Not Recovered/Not Resolved]
  - Injury [Unknown]
  - Theft [Not Recovered/Not Resolved]
  - Dysarthria [Unknown]
  - Insomnia [Unknown]
  - Compulsive sexual behaviour [Not Recovered/Not Resolved]
  - Trichotillomania [Not Recovered/Not Resolved]
  - Alcohol abuse [Unknown]
  - Compulsive hoarding [Not Recovered/Not Resolved]
  - Eating disorder [Not Recovered/Not Resolved]
  - Obsessive-compulsive disorder [Not Recovered/Not Resolved]
  - Dermatillomania [Not Recovered/Not Resolved]
  - Anxiety [Unknown]
  - Substance abuse [Unknown]
  - Emotional distress [Unknown]
  - Skin abrasion [Not Recovered/Not Resolved]
  - Prescribed underdose [Unknown]
  - Dependence [Unknown]
  - Compulsive shopping [Not Recovered/Not Resolved]
  - Suicidal ideation [Not Recovered/Not Resolved]
  - Impulsive behaviour [Unknown]
